FAERS Safety Report 4947966-9 (Version None)
Quarter: 2006Q1

REPORT INFORMATION
  Report Type: 
  Country: None (occurrence: None)
  Receive Date: 20060320
  Receipt Date: 20050930
  Transmission Date: 20060701
  Serious: Yes (Hospitalization)
  Sender: FDA-Public Use
  Company Number: US-MERCK-0510USA01320

PATIENT
  Age: 44 Year
  Sex: Female
  Weight: 45 kg

DRUGS (1)
  1. VIOXX [Suspect]
     Route: 048
     Dates: start: 19990501, end: 20040930

REACTIONS (7)
  - DYSPNOEA [None]
  - GANGRENE [None]
  - HEPATITIS B [None]
  - PNEUMONITIS [None]
  - RAYNAUD'S PHENOMENON [None]
  - TRANSIENT ISCHAEMIC ATTACK [None]
  - VASCULITIS [None]
